FAERS Safety Report 25256338 (Version 1)
Quarter: 2025Q2

REPORT INFORMATION
  Report Type: Report from Study
  Country: US (occurrence: US)
  Receive Date: 20250430
  Receipt Date: 20250430
  Transmission Date: 20250716
  Serious: Yes (Other)
  Sender: AMGEN
  Company Number: US-AMGEN-USASL2024231031

PATIENT
  Age: 74 Year
  Sex: Female

DRUGS (4)
  1. TEPEZZA [Suspect]
     Active Substance: TEPROTUMUMAB-TRBW
     Indication: Toxic goitre
     Route: 040
     Dates: start: 20241028
  2. TEPEZZA [Suspect]
     Active Substance: TEPROTUMUMAB-TRBW
     Route: 040
     Dates: start: 2024
  3. TEPEZZA [Suspect]
     Active Substance: TEPROTUMUMAB-TRBW
     Route: 040
     Dates: start: 20241209
  4. TEPEZZA [Suspect]
     Active Substance: TEPROTUMUMAB-TRBW
     Route: 040
     Dates: start: 20241230, end: 20241230

REACTIONS (18)
  - Bone disorder [Unknown]
  - Swelling face [Unknown]
  - Weight decreased [Unknown]
  - Pain in jaw [Unknown]
  - Hypertension [Unknown]
  - Muscle spasms [Not Recovered/Not Resolved]
  - Nausea [Recovered/Resolved]
  - Nail discolouration [Unknown]
  - Hypoacusis [Not Recovered/Not Resolved]
  - Diplopia [Recovering/Resolving]
  - Eye swelling [Not Recovered/Not Resolved]
  - Lethargy [Unknown]
  - Tremor [Unknown]
  - Gait disturbance [Unknown]
  - Decreased appetite [Unknown]
  - Lacrimation increased [Unknown]
  - Neck pain [Unknown]
  - Dysphagia [Unknown]

NARRATIVE: CASE EVENT DATE: 20250106
